FAERS Safety Report 24084400 (Version 1)
Quarter: 2024Q3

REPORT INFORMATION
  Report Type: Spontaneous
  Country: EG (occurrence: EG)
  Receive Date: 20240712
  Receipt Date: 20240712
  Transmission Date: 20241017
  Serious: Yes (Hospitalization, Other)
  Sender: HIKMA
  Company Number: EG-HIKMA PHARMACEUTICALS USA INC.-EG-H14001-24-06180

PATIENT

DRUGS (3)
  1. CARBOPLATIN [Suspect]
     Active Substance: CARBOPLATIN
     Indication: Breast cancer
     Dosage: 581MG /DAY 1, EVERY 21 DAYS
     Route: 041
     Dates: start: 20240518
  2. PACLITAXEL [Suspect]
     Active Substance: PACLITAXEL
     Indication: Breast cancer
     Dosage: 133.6 MG /DAY 1, 8,15 EVERY 21 DAYS
     Route: 041
     Dates: start: 20240518
  3. PACLITAXEL [Suspect]
     Active Substance: PACLITAXEL
     Dosage: 133.6 MG /DAY 1, 8,15 EVERY 21 DAYS
     Route: 041
     Dates: start: 20240525

REACTIONS (2)
  - Stomatitis [Recovered/Resolved]
  - Dysphonia [Recovering/Resolving]

NARRATIVE: CASE EVENT DATE: 20240527
